FAERS Safety Report 7630730-X (Version None)
Quarter: 2011Q3

REPORT INFORMATION
  Report Type: 
  Country: None (occurrence: None)
  Receive Date: 20110722
  Receipt Date: 20110720
  Transmission Date: 20111222
  Serious: Yes (Other)
  Sender: FDA-Public Use
  Company Number: GB-MERCK-1002GBR00002

PATIENT
  Age: 52 Year
  Sex: Female

DRUGS (4)
  1. ZOCOR [Suspect]
     Indication: TYPE 2 DIABETES MELLITUS
     Route: 048
  2. LIRAGLUTIDE [Suspect]
     Indication: TYPE 2 DIABETES MELLITUS
     Route: 065
     Dates: start: 20091001
  3. GLICLAZIDE [Suspect]
     Indication: TYPE 2 DIABETES MELLITUS
     Route: 065
  4. METFORMIN HCL [Suspect]
     Indication: TYPE 2 DIABETES MELLITUS
     Route: 065

REACTIONS (4)
  - ABDOMINAL PAIN UPPER [None]
  - LIVER FUNCTION TEST ABNORMAL [None]
  - JAUNDICE [None]
  - PANCREATIC CARCINOMA [None]
